FAERS Safety Report 25797420 (Version 1)
Quarter: 2025Q3

REPORT INFORMATION
  Report Type: Report from Study
  Country: US (occurrence: US)
  Receive Date: 20250912
  Receipt Date: 20250912
  Transmission Date: 20251020
  Serious: Yes (Hospitalization)
  Sender: ELI LILLY AND COMPANY
  Company Number: US-ELI_LILLY_AND_COMPANY-US202509002669

PATIENT
  Age: 76 Year
  Sex: Male

DRUGS (4)
  1. TIRZEPATIDE [Suspect]
     Active Substance: TIRZEPATIDE
     Indication: Weight control
     Route: 058
     Dates: start: 202503
  2. TIRZEPATIDE [Suspect]
     Active Substance: TIRZEPATIDE
     Route: 058
     Dates: start: 20250826
  3. PEPCID [Concomitant]
     Active Substance: FAMOTIDINE
     Indication: Barrett^s oesophagus
  4. OMEPRAZOLE [Concomitant]
     Active Substance: OMEPRAZOLE
     Indication: Barrett^s oesophagus

REACTIONS (9)
  - Barrett^s oesophagus [Unknown]
  - Regurgitation [Unknown]
  - Anxiety [Unknown]
  - Dyspnoea [Unknown]
  - Dizziness [Unknown]
  - Abdominal pain upper [Unknown]
  - Inflammation [Unknown]
  - Asthenia [Unknown]
  - Abdominal discomfort [Unknown]
